FAERS Safety Report 13040410 (Version 1)
Quarter: 2016Q4

REPORT INFORMATION
  Report Type: Spontaneous
  Country: US (occurrence: US)
  Receive Date: 20161219
  Receipt Date: 20161219
  Transmission Date: 20170207
  Serious: Yes (Life-Threatening)
  Sender: FDA-Public Use
  Company Number: None

PATIENT
  Age: 73 Year
  Sex: Male
  Weight: 87 kg

DRUGS (1)
  1. AMOXICILLIN/CLAVULANATE [Suspect]
     Active Substance: AMOXICILLIN\CLAVULANATE POTASSIUM
     Indication: PNEUMONIA
     Dosage: 1 TAB; BID; PO
     Route: 048
     Dates: start: 20161209, end: 20161214

REACTIONS (8)
  - Alanine aminotransferase increased [None]
  - Ammonia increased [None]
  - Blood alkaline phosphatase increased [None]
  - Fall [None]
  - Confusional state [None]
  - International normalised ratio increased [None]
  - Blood creatinine increased [None]
  - Aspartate aminotransferase increased [None]

NARRATIVE: CASE EVENT DATE: 20161214
